FAERS Safety Report 9132543 (Version 1)
Quarter: 2013Q1

REPORT INFORMATION
  Report Type: Report from Study
  Country: CA (occurrence: CA)
  Receive Date: 20130208
  Receipt Date: 20130208
  Transmission Date: 20140127
  Serious: Yes (Other)
  Sender: FDA-Public Use
  Company Number: CA-JNJFOC-20130200554

PATIENT
  Age: 53 Year
  Sex: Female
  Weight: 61 kg

DRUGS (18)
  1. REMICADE [Suspect]
     Indication: CROHN^S DISEASE
     Route: 042
     Dates: start: 20120312
  2. PREDNISONE [Concomitant]
     Route: 065
     Dates: end: 201209
  3. AZATHIOPRINE [Concomitant]
     Route: 065
  4. CITALOPRAM [Concomitant]
     Route: 065
  5. CRESTOR [Concomitant]
     Route: 065
  6. GABAPENTIN [Concomitant]
     Route: 065
  7. CALCIUM [Concomitant]
     Route: 065
  8. VITAMIN B 12 [Concomitant]
     Route: 065
  9. METFORMIN [Concomitant]
     Route: 065
  10. VITAMIN D [Concomitant]
     Route: 065
  11. PANTOPRAZOLE [Concomitant]
     Route: 065
  12. DOCUSATE [Concomitant]
     Route: 065
  13. GLICLAZIDE [Concomitant]
     Route: 065
     Dates: start: 20120419
  14. QUETIAPINE [Concomitant]
     Route: 065
  15. TRAZODONE [Concomitant]
     Route: 065
  16. ZOPICLONE [Concomitant]
     Route: 065
  17. ETIDROCAL COMBO KIT [Concomitant]
     Route: 065
  18. MULTIVITAMINS [Concomitant]
     Dosage: 1 PILL PER DAY
     Route: 065

REACTIONS (2)
  - Anal fistula [Not Recovered/Not Resolved]
  - Skin infection [Not Recovered/Not Resolved]
